FAERS Safety Report 8902371 (Version 1)
Quarter: 2012Q4

REPORT INFORMATION
  Report Type: 
  Country: KR (occurrence: KR)
  Receive Date: 20121112
  Receipt Date: 20121112
  Transmission Date: 20130627
  Serious: Yes (Other)
  Sender: FDA-Public Use
  Company Number: KR-PFIZER INC-2012277578

PATIENT
  Age: 62 Year
  Sex: Male

DRUGS (4)
  1. OXALIPLATIN [Suspect]
     Indication: ADENOCARCINOMA
     Dosage: 100 mg/m2, cyclic
     Route: 042
  2. FLUOROURACIL [Concomitant]
     Indication: ADENOCARCINOMA
     Dosage: 400 mg/m2, cyclic
     Route: 040
  3. FLUOROURACIL [Concomitant]
     Dosage: 2400 mg/m2, cyclic
     Route: 042
  4. LEUCOVORIN [Concomitant]
     Indication: ADENOCARCINOMA
     Dosage: 200 mg/m2, cyclic

REACTIONS (1)
  - Guillain-Barre syndrome [Not Recovered/Not Resolved]
